FAERS Safety Report 18326728 (Version 1)
Quarter: 2020Q3

REPORT INFORMATION
  Report Type: Spontaneous
  Country: AT (occurrence: AT)
  Receive Date: 20200929
  Receipt Date: 20200929
  Transmission Date: 20201103
  Serious: Yes (Life-Threatening, Other)
  Sender: FDA-Public Use
  Company Number: AT-BRACCO-2020AT03956

PATIENT
  Age: 36 Year
  Sex: Female

DRUGS (1)
  1. JOPAMIRO 370 [Suspect]
     Active Substance: IOPAMIDOL
     Indication: ANGIOCARDIOGRAM
     Dosage: 47 ML, SINGLE
     Dates: start: 20200910, end: 20200910

REACTIONS (2)
  - Ventricular tachycardia [Unknown]
  - Hyperthyroidism [Unknown]

NARRATIVE: CASE EVENT DATE: 20200910
